FAERS Safety Report 5430369-0 (Version None)
Quarter: 2007Q3

REPORT INFORMATION
  Report Type: 
  Country: None (occurrence: None)
  Receive Date: 20070828
  Receipt Date: 20070813
  Transmission Date: 20080115
  Serious: Yes (Other)
  Sender: FDA-Public Use
  Company Number: 2007RR-09324

PATIENT
  Age: 29 Year
  Sex: Female

DRUGS (5)
  1. CLARITHROMYCIN [Suspect]
     Dosage: 500 MG
  2. CORTISONE ACETATE [Concomitant]
  3. PARACETAMOL RANBAXY 1G COMPRIME (ACETAMINOPHEN/PARACETAMOL) [Concomitant]
  4. GUAIFENESIN [Concomitant]
  5. BECLOMETHASONE DIPROPIONATE [Concomitant]

REACTIONS (4)
  - AGRANULOCYTOSIS [None]
  - ANORECTAL DISORDER [None]
  - LEUKOPENIA [None]
  - MOUTH ULCERATION [None]
